FAERS Safety Report 4415260-0 (Version None)
Quarter: 2004Q3

REPORT INFORMATION
  Report Type: 
  Country: None (occurrence: None)
  Receive Date: 20040804
  Receipt Date: 20040622
  Transmission Date: 20050211
  Serious: Yes (Other)
  Sender: FDA-Public Use
  Company Number: US-BRISTOL-MYERS SQUIBB COMPANY-12623856

PATIENT
  Age: 75 Year
  Sex: Female

DRUGS (2)
  1. TEQUIN [Suspect]
     Indication: SINUSITIS
     Dosage: 2 DOSES
     Route: 048
     Dates: start: 20040615, end: 20040616
  2. COUMADIN [Concomitant]

REACTIONS (1)
  - HYPOGLYCAEMIA [None]
